FAERS Safety Report 9332990 (Version 1)
Quarter: 2013Q2

REPORT INFORMATION
  Report Type: Spontaneous
  Country: US (occurrence: None)
  Receive Date: 20130603
  Receipt Date: 20130603
  Transmission Date: 20140414
  Serious: Yes (Hospitalization, Other)
  Sender: FDA-Public Use
  Company Number: AUR-APL-2013-04425

PATIENT
  Age: 48 Year
  Sex: Male
  Weight: 104.3 kg

DRUGS (6)
  1. CARVEDILOL (CARVEDILOL) [Suspect]
     Indication: BLOOD PRESSURE ABNORMAL
     Dosage: 1/2 TABLET TWICE DAILY, UNKNOWN
  2. OXYCODONE (OXYCODONE) [Suspect]
     Indication: PAIN
  3. PREVACID (LANSOPRAZOLE) [Suspect]
     Indication: ABDOMINAL DISCOMFORT
  4. XANAX (ALPRAZOLAM) [Suspect]
     Indication: ANXIETY
  5. LYRICA (PREGABALIN) [Suspect]
     Indication: PAIN
     Dosage: 100 MG (50 MG, 2 IN 1 D), ORAL
     Route: 048
     Dates: start: 20130505
  6. LYRICA [Concomitant]

REACTIONS (11)
  - Inadequate analgesia [None]
  - Pneumonia [None]
  - Lung infection [None]
  - Pulmonary thrombosis [None]
  - Rhabdomyolysis [None]
  - Musculoskeletal stiffness [None]
  - Helicobacter infection [None]
  - Phantom pain [None]
  - Drug interaction [None]
  - Wrong technique in drug usage process [None]
  - Incorrect dose administered [None]
